FAERS Safety Report 9923716 (Version 1)
Quarter: 2014Q1

REPORT INFORMATION
  Report Type: Spontaneous
  Country: US (occurrence: US)
  Receive Date: 20140225
  Receipt Date: 20140225
  Transmission Date: 20141002
  Serious: No
  Sender: FDA-Public Use
  Company Number: US-AMGEN-USASP2014001463

PATIENT
  Age: 70 Year
  Sex: Female

DRUGS (2)
  1. ENBREL [Suspect]
     Indication: RHEUMATOID ARTHRITIS
     Dosage: 50 MG, QWK
     Route: 065
     Dates: start: 20120629, end: 2013
  2. XELJANZ [Concomitant]
     Dosage: 5 MG, BID
     Dates: start: 201310

REACTIONS (2)
  - Drug ineffective [Recovered/Resolved]
  - Joint swelling [Recovered/Resolved]
